FAERS Safety Report 4682077-1 (Version None)
Quarter: 2005Q2

REPORT INFORMATION
  Report Type: 
  Country: None (occurrence: None)
  Receive Date: 20050602
  Receipt Date: 20050518
  Transmission Date: 20051028
  Serious: Yes (Other)
  Sender: FDA-Public Use
  Company Number: 200510109BVD

PATIENT
  Age: 58 Year
  Sex: Female
  Weight: 70 kg

DRUGS (2)
  1. AVALOX (MOXIFLOXACIN HYDROCHLORIDE) [Suspect]
     Indication: BRONCHITIS
     Dosage: 400 MG , ONCE, ORAL
     Route: 048
     Dates: start: 20050112
  2. KORODIN [Concomitant]

REACTIONS (16)
  - ACCIDENTAL EXPOSURE [None]
  - CARDIOVASCULAR DISORDER [None]
  - EXTRASYSTOLES [None]
  - FALL [None]
  - HEART RATE DECREASED [None]
  - HEMIPLEGIA [None]
  - HYPERSENSITIVITY [None]
  - LOSS OF CONSCIOUSNESS [None]
  - MONOPLEGIA [None]
  - NAUSEA [None]
  - PARAESTHESIA [None]
  - PARALYSIS [None]
  - PULSE PRESSURE DECREASED [None]
  - RESPIRATORY RATE INCREASED [None]
  - TENDON DISORDER [None]
  - VERTIGO [None]
